FAERS Safety Report 20766958 (Version 1)
Quarter: 2022Q2

REPORT INFORMATION
  Report Type: Spontaneous
  Country: FR (occurrence: FR)
  Receive Date: 20220429
  Receipt Date: 20220429
  Transmission Date: 20220721
  Serious: Yes (Hospitalization)
  Sender: FDA-Public Use
  Company Number: None

PATIENT
  Age: 73 Year
  Sex: Male
  Weight: 70 kg

DRUGS (14)
  1. CASPOFUNGIN [Suspect]
     Active Substance: CASPOFUNGIN
     Indication: Jaw operation
     Dosage: UNIT DOSE: 70 MG, FREQUENCY TIME: 1 DAY, DURATION : 21 DAY
     Route: 042
     Dates: start: 20210401, end: 20210422
  2. LEVOFLOXACIN [Suspect]
     Active Substance: LEVOFLOXACIN
     Indication: Jaw operation
     Dosage: UNIT DOSE: 750 MG, FREQUENCY TIME : 1 DAY, DURATION : 21 DAY
     Route: 048
     Dates: start: 20210401, end: 20210422
  3. CEFOXITIN [Suspect]
     Active Substance: CEFOXITIN SODIUM
     Indication: Jaw operation
     Dosage: UNIT DOSE: 2 GM, FREQUENCY TIME: 8 HRS, DURATION : 27 DAYS
     Route: 042
     Dates: start: 20210401, end: 20210428
  4. VANCOMYCIN [Suspect]
     Active Substance: VANCOMYCIN
     Indication: Jaw operation
     Dosage: UNIT DOSE: 1 GM, FREQUENCY TIME : 12 HRS, DURATION: 21 DAYS
     Route: 042
     Dates: start: 20210401, end: 20210422
  5. MEROPENEM ANHYDROUS [Suspect]
     Active Substance: MEROPENEM ANHYDROUS
     Indication: Jaw operation
     Dosage: UNIT DOSE: 2 GM, FREQUENCY TIME : 8 HRS, DURATION : 21 DAYS
     Route: 042
     Dates: start: 20210401, end: 20210422
  6. DAPTOMYCIN [Suspect]
     Active Substance: DAPTOMYCIN
     Indication: Jaw operation
     Dosage: UNIT DOSE: 500 MG, FREQUENCY TIME : 1 DAY, DURATION : 4 DAYS
     Route: 042
     Dates: start: 20210424, end: 20210428
  7. BACTRIM [Suspect]
     Active Substance: SULFAMETHOXAZOLE\TRIMETHOPRIM
     Indication: Jaw operation
     Dosage: DURATION : 2 DAY
     Dates: start: 20210426, end: 20210428
  8. ACETAMINOPHEN [Concomitant]
     Active Substance: ACETAMINOPHEN
  9. NEFOPAM HYDROCHLORIDE [Concomitant]
     Active Substance: NEFOPAM HYDROCHLORIDE
     Dosage: NEFOPAM (CHLORHYDRATE DE)
  10. TRAMADOL HYDROCHLORIDE [Concomitant]
     Active Substance: TRAMADOL HYDROCHLORIDE
     Dosage: TRAMADOL (CHLORHYDRATE DE)
  11. ENOXAPARIN SODIUM [Concomitant]
     Active Substance: ENOXAPARIN SODIUM
  12. FENTANYL [Concomitant]
     Active Substance: FENTANYL
  13. ASPIRIN DL-LYSINE [Concomitant]
     Active Substance: ASPIRIN DL-LYSINE
     Dosage: ACETYLSALICYLATE DE DL-LYSINE
  14. ALFUZOSIN HYDROCHLORIDE [Concomitant]
     Active Substance: ALFUZOSIN HYDROCHLORIDE
     Dosage: ALFUZOSINE (CHLORHYDRATE D)

REACTIONS (1)
  - Drug reaction with eosinophilia and systemic symptoms [Recovered/Resolved]

NARRATIVE: CASE EVENT DATE: 20210421
